FAERS Safety Report 9298016 (Version 3)
Quarter: 2013Q4

REPORT INFORMATION
  Report Type: Spontaneous
  Country: JP (occurrence: JP)
  Receive Date: 20130520
  Receipt Date: 20131023
  Transmission Date: 20140711
  Serious: Yes (Death, Other)
  Sender: FDA-Public Use
  Company Number: JP-ASTELLAS-2013JP005915

PATIENT
  Age: 22 Year
  Sex: Male

DRUGS (20)
  1. PROGRAF [Suspect]
     Indication: PROPHYLAXIS AGAINST GRAFT VERSUS HOST DISEASE
     Dosage: UNK
     Route: 065
     Dates: end: 20090127
  2. PROGRAF [Suspect]
     Dosage: UNK
     Route: 041
     Dates: start: 20120706, end: 20120821
  3. PROGRAF [Suspect]
     Indication: PROPHYLAXIS AGAINST GRAFT VERSUS HOST DISEASE
     Dosage: 1 UNK, UNKNOWN/D
     Route: 048
     Dates: start: 20120822, end: 20120921
  4. FLUDARA [Concomitant]
     Indication: PREMEDICATION
     Dosage: UNK
     Route: 065
  5. LOXOPROFEN                         /00890702/ [Concomitant]
     Dosage: 60 MG, UNKNOWN/D
     Route: 048
     Dates: end: 20120705
  6. MEQUITAZINE [Concomitant]
     Dosage: 6 MG, UNKNOWN/D
     Route: 048
     Dates: end: 20120705
  7. AMBROXOL [Concomitant]
     Dosage: 30 MG, UNKNOWN/D
     Route: 048
     Dates: end: 20120705
  8. REVLIMID [Concomitant]
     Dosage: UNK
     Route: 048
     Dates: start: 20120410
  9. METHYLPREDNISOLONE [Concomitant]
     Indication: PROPHYLAXIS AGAINST GRAFT VERSUS HOST DISEASE
     Dosage: 50 MG, UNKNOWN/D
     Route: 041
     Dates: start: 20120713, end: 20120727
  10. METHYLPREDNISOLONE [Concomitant]
     Indication: STEROID THERAPY
     Dosage: 5 MG, WEEKLY
     Route: 041
     Dates: start: 20120728
  11. METHYLPREDNISOLONE [Concomitant]
     Dosage: UNK
     Route: 065
     Dates: start: 20120921, end: 20120923
  12. GRAN [Concomitant]
     Indication: FLUID RETENTION
     Dosage: 450 UG, UNKNOWN/D
     Route: 065
     Dates: start: 20120714, end: 20120721
  13. FUROSEMIDE [Concomitant]
     Indication: FLUID RETENTION
     Dosage: UNK
     Route: 065
     Dates: start: 20120714
  14. HANP [Concomitant]
     Indication: FLUID RETENTION
     Dosage: UNK
     Route: 065
     Dates: start: 20120715
  15. RECOMODULIN [Concomitant]
     Indication: PROPHYLAXIS
     Dosage: 25600 IU, UNKNOWN/D
     Route: 065
     Dates: start: 20120718, end: 20120724
  16. RECOMODULIN [Concomitant]
     Dosage: 12800 IU, UNKNOWN/D
     Route: 065
     Dates: start: 20120912, end: 20120918
  17. VALIXA [Concomitant]
     Dosage: 900 MG, UNKNOWN/D
     Route: 048
     Dates: start: 20120820, end: 20120907
  18. FOSCAVIR [Concomitant]
     Dosage: 6000 MG, UNKNOWN/D
     Route: 042
     Dates: start: 20120908
  19. ALKERAN                            /00006401/ [Concomitant]
     Indication: PREMEDICATION
     Route: 065
  20. ATG                                /00575401/ [Concomitant]
     Indication: PREMEDICATION
     Route: 065

REACTIONS (3)
  - Encephalopathy [Fatal]
  - Encephalopathy [Unknown]
  - Thrombotic microangiopathy [Fatal]
